FAERS Safety Report 4809344-2 (Version None)
Quarter: 2005Q4

REPORT INFORMATION
  Report Type: 
  Country: None (occurrence: None)
  Receive Date: 20051021
  Receipt Date: 20020321
  Transmission Date: 20060501
  Serious: Yes (Other)
  Sender: FDA-Public Use
  Company Number: USA020210892

PATIENT
  Age: 80 Year
  Sex: Female

DRUGS (4)
  1. ZYPREXA [Suspect]
     Indication: AGITATION
     Dosage: 2.5 MG/DAY
     Dates: start: 20011119, end: 20020201
  2. ZYPREXA [Suspect]
     Indication: DEPRESSION
     Dosage: 2.5 MG/DAY
     Dates: start: 20011119, end: 20020201
  3. PAXIL [Concomitant]
  4. INDERAL [Concomitant]

REACTIONS (6)
  - BLOOD SODIUM DECREASED [None]
  - GRAND MAL CONVULSION [None]
  - HEADACHE [None]
  - MUSCLE RIGIDITY [None]
  - PARANOIA [None]
  - WHITE BLOOD CELL COUNT INCREASED [None]
